FAERS Safety Report 9898706 (Version 4)
Quarter: 2014Q1

REPORT INFORMATION
  Report Type: Spontaneous
  Country: US (occurrence: US)
  Receive Date: 20140214
  Receipt Date: 20140324
  Transmission Date: 20141002
  Serious: Yes (Hospitalization, Other)
  Sender: FDA-Public Use
  Company Number: US-BAXTER-2014BAX006340

PATIENT
  Sex: Female

DRUGS (1)
  1. DIANEAL LOW CALCIUM [Suspect]
     Indication: PERITONEAL DIALYSIS
     Route: 033

REACTIONS (6)
  - Cellulitis [Recovering/Resolving]
  - Device related infection [Recovering/Resolving]
  - Multimorbidity [Unknown]
  - Peritonitis [Recovering/Resolving]
  - Blister [Unknown]
  - Peritoneal dialysis complication [Unknown]
